FAERS Safety Report 10563663 (Version 2)
Quarter: 2015Q1

REPORT INFORMATION
  Report Type: Spontaneous
  Country: US (occurrence: US)
  Receive Date: 20141104
  Receipt Date: 20150206
  Transmission Date: 20150720
  Serious: Yes (Death)
  Sender: FDA-Public Use
  Company Number: US-GSKJP-US2014GSK016124AA

PATIENT
  Age: 63 Year
  Sex: Male
  Weight: 68.5 kg

DRUGS (4)
  1. VEMURAFENIB [Suspect]
     Active Substance: VEMURAFENIB
     Indication: METASTATIC MALIGNANT MELANOMA
  2. KEPPRA [Concomitant]
     Active Substance: LEVETIRACETAM
     Indication: SEIZURE
  3. YERVOY [Suspect]
     Active Substance: IPILIMUMAB
     Indication: METASTATIC MALIGNANT MELANOMA
  4. TAFINLAR [Suspect]
     Active Substance: DABRAFENIB MESYLATE
     Indication: METASTATIC MALIGNANT MELANOMA
     Dosage: 75 MG, U
     Dates: start: 20131206, end: 201404

REACTIONS (9)
  - Tremor [Unknown]
  - Pain [Unknown]
  - Fatigue [Unknown]
  - Cognitive disorder [Unknown]
  - Motor dysfunction [Unknown]
  - Coordination abnormal [Unknown]
  - Muscular weakness [Unknown]
  - Disease progression [Fatal]
  - Thrombosis [Unknown]

NARRATIVE: CASE EVENT DATE: 201403
